FAERS Safety Report 21199071 (Version 1)
Quarter: 2022Q3

REPORT INFORMATION
  Report Type: Spontaneous
  Country: IR (occurrence: IR)
  Receive Date: 20220811
  Receipt Date: 20220811
  Transmission Date: 20221026
  Serious: Yes (Life-Threatening)
  Sender: FDA-Public Use
  Company Number: IR-MLMSERVICE-20220728-3700355-1

PATIENT
  Age: 4 Year
  Sex: Male

DRUGS (11)
  1. HYDROCORTISONE [Suspect]
     Active Substance: HYDROCORTISONE
     Indication: Acute myelomonocytic leukaemia
     Dosage: TRIPLE IT DOSES
     Route: 037
  2. CYTARABINE [Suspect]
     Active Substance: CYTARABINE
     Indication: Acute myelomonocytic leukaemia
     Dosage: TRIPLE IT DOSES
     Route: 037
  3. CYTARABINE [Suspect]
     Active Substance: CYTARABINE
     Dosage: FIRST COURSE: 200 MG/M2 PER DAY ON DAYS 1, 2, 3, 4
     Route: 042
  4. CYTARABINE [Suspect]
     Active Substance: CYTARABINE
     Dosage: SECOND COURSE: 100 MG/M2 PER DAY ON DAYS 1, 2, 3, 4, 5
     Route: 042
  5. CYTARABINE [Suspect]
     Active Substance: CYTARABINE
     Dosage: CONSOLIDATION THERAPY: 2 G/M2 EVERY 12 HOURS AS A 2-HOUR IV INFUSION ON DAYS 1, 2, 3
     Route: 042
  6. METHOTREXATE [Suspect]
     Active Substance: METHOTREXATE
     Indication: Acute myelomonocytic leukaemia
     Dosage: TRIPLE IT DOSES
     Route: 037
  7. IDARUBICIN [Suspect]
     Active Substance: IDARUBICIN
     Indication: Acute myelomonocytic leukaemia
     Dosage: 12 MG/M2 AS A 4-HOUR IV INFUSION ON DAYS 2, 4, 6
     Route: 042
  8. THIOGUANINE ANHYDROUS [Suspect]
     Active Substance: THIOGUANINE ANHYDROUS
     Indication: Acute myelomonocytic leukaemia
     Dosage: EVERY 12 HOURS ON DAYS 1, 2, 3, 4
     Route: 048
  9. ETOPOSIDE [Suspect]
     Active Substance: ETOPOSIDE
     Indication: Acute myelomonocytic leukaemia
     Dosage: 100 MG/M2 PER DAY ON DAYS 1, 2, 3, 4
     Route: 042
  10. ETOPOSIDE [Suspect]
     Active Substance: ETOPOSIDE
     Dosage: 100 MG/M2 AS A 60-MINUTE IV INFUSION ON DAYS 2, 3, 4, 5
     Route: 042
  11. MITOXANTRONE [Suspect]
     Active Substance: MITOXANTRONE HYDROCHLORIDE
     Indication: Acute myelomonocytic leukaemia
     Dosage: 10 MG/M2 AS A 30-MINUTE IV INFUSION ON DAYS 1, 2, 3
     Route: 042

REACTIONS (5)
  - Pericardial effusion [Recovering/Resolving]
  - Respiratory distress [Recovering/Resolving]
  - Condition aggravated [Recovering/Resolving]
  - Thrombocytopenia [Recovering/Resolving]
  - Venoocclusive liver disease [Recovering/Resolving]
